FAERS Safety Report 5962930-9 (Version None)
Quarter: 2008Q4

REPORT INFORMATION
  Report Type: 
  Country: None (occurrence: None)
  Receive Date: 20081120
  Receipt Date: 20081113
  Transmission Date: 20090506
  Serious: Yes (Hospitalization)
  Sender: FDA-Public Use
  Company Number: TPA2008A02025

PATIENT
  Age: 62 Year
  Sex: Male
  Weight: 107.0489 kg

DRUGS (6)
  1. ACTOPLUS MET [Suspect]
     Indication: TYPE 2 DIABETES MELLITUS
     Dosage: 15/850 MG, 2 IN 1 DAY, PER ORAL
     Route: 048
     Dates: end: 20081101
  2. METOPROLOL ER (METOPROLOL TARTRATE) (TABLETS) [Concomitant]
  3. SIMVASTATIN [Concomitant]
  4. ASPIRIN [Concomitant]
  5. ALPRAZOLAM [Concomitant]
  6. LISINOPRIL [Concomitant]

REACTIONS (6)
  - ARTERIAL OCCLUSIVE DISEASE [None]
  - BLISTER [None]
  - MEDICAL DEVICE COMPLICATION [None]
  - PRURITUS [None]
  - SKIN DISORDER [None]
  - URTICARIA [None]
